FAERS Safety Report 21336168 (Version 1)
Quarter: 2022Q3

REPORT INFORMATION
  Report Type: Report from Study
  Country: CN (occurrence: None)
  Receive Date: 20220915
  Receipt Date: 20220915
  Transmission Date: 20221027
  Serious: Yes (Life-Threatening, Hospitalization)
  Sender: FDA-Public Use
  Company Number: CN-ROCHE-3065498

PATIENT
  Age: 53 Year
  Sex: Male
  Weight: 66.5 kg

DRUGS (4)
  1. ATEZOLIZUMAB [Suspect]
     Active Substance: ATEZOLIZUMAB
     Indication: Small cell lung cancer extensive stage
     Dosage: ON 22/MAR/2022 RECEIVED MOST RECENT DOSE OF ATEZOLIZUMAB PRIOR TO AE AND SAE. DOSE WAS TEMPORARILY I
     Route: 041
     Dates: start: 20220111, end: 20220714
  2. CISPLATIN [Suspect]
     Active Substance: CISPLATIN
     Indication: Small cell lung cancer extensive stage
     Dosage: ON 24/MAR/2022 RECEIVED MOST RECENT DOSE OF CISPLATIN PRIOR TO AE AND SAE
     Route: 042
     Dates: start: 20220111
  3. ETOPOSIDE [Suspect]
     Active Substance: ETOPOSIDE
     Indication: Small cell lung cancer extensive stage
     Dosage: ON 24/MAR/2022 RECEIVED MOST RECENT DOSE OF ETOPOSIDE PRIOR TO AE AND SAE
     Route: 042
     Dates: start: 20220111
  4. MONTMORILLONITE [Concomitant]
     Active Substance: MONTMORILLONITE
     Dates: start: 20220412

REACTIONS (3)
  - Neutropenia [Recovered/Resolved]
  - Diarrhoea [Recovered/Resolved]
  - Troponin T increased [Recovered/Resolved]

NARRATIVE: CASE EVENT DATE: 20220330
